FAERS Safety Report 14546774 (Version 4)
Quarter: 2019Q3

REPORT INFORMATION
  Report Type: Spontaneous
  Country: US (occurrence: US)
  Receive Date: 20180219
  Receipt Date: 20190718
  Transmission Date: 20191004
  Serious: Yes (Other)
  Sender: FDA-Public Use
  Company Number: US-PFIZER INC-2018067160

PATIENT
  Age: 67 Year
  Sex: Female

DRUGS (8)
  1. XALKORI [Suspect]
     Active Substance: CRIZOTINIB
     Indication: NON-SMALL CELL LUNG CANCER STAGE IV
     Dosage: 250 MG, 2X/DAY
     Dates: start: 201704
  2. NALTREXONE [Concomitant]
     Active Substance: NALTREXONE
     Dosage: UNK
     Dates: start: 201706
  3. PRILOSEC [Concomitant]
     Active Substance: OMEPRAZOLE MAGNESIUM
     Indication: GASTROOESOPHAGEAL REFLUX DISEASE
     Dosage: 20 MG, 1X/DAY
     Route: 048
     Dates: start: 2000
  4. TURMERIC [Concomitant]
     Active Substance: HERBALS\TURMERIC
     Indication: INFLAMMATION
     Dosage: 100 MG, 2X/DAY
     Route: 048
     Dates: start: 2012
  5. HYDROCHLOROTHIAZIDE. [Concomitant]
     Active Substance: HYDROCHLOROTHIAZIDE
     Indication: FLUID RETENTION
     Dosage: 12.5 MG, 1X/DAY
     Route: 048
     Dates: start: 2017
  6. NALTREXONE [Concomitant]
     Active Substance: NALTREXONE
     Indication: IMMUNE SYSTEM DISORDER
     Dosage: 4.5 MG, 1X/DAY
     Route: 048
     Dates: start: 201706
  7. XALKORI [Suspect]
     Active Substance: CRIZOTINIB
     Dosage: 250 MG, 2X/DAY
     Dates: start: 201705
  8. GABAPENTIN. [Concomitant]
     Active Substance: GABAPENTIN
     Indication: FIBROMYALGIA
     Dosage: 800 MG, 2X/DAY
     Route: 048
     Dates: start: 2000

REACTIONS (11)
  - Pericardial effusion [Unknown]
  - Peripheral swelling [Unknown]
  - Malaise [Unknown]
  - Inflammation [Unknown]
  - Nausea [Unknown]
  - Renal cyst [Recovering/Resolving]
  - Influenza [Recovered/Resolved]
  - Eye disorder [Unknown]
  - Neuropathy peripheral [Unknown]
  - Heart rate decreased [Unknown]
  - Vitreous floaters [Unknown]

NARRATIVE: CASE EVENT DATE: 201712
